FAERS Safety Report 8384042-X (Version None)
Quarter: 2012Q2

REPORT INFORMATION
  Report Type: 
  Country: None (occurrence: None)
  Receive Date: 20120524
  Receipt Date: 20120515
  Transmission Date: 20120825
  Serious: No
  Sender: FDA-Public Use
  Company Number: US-BAYER-2012-049382

PATIENT
  Age: 45 Year
  Sex: Female
  Weight: 82 kg

DRUGS (4)
  1. NAPROXEN SODIUM [Suspect]
     Indication: TOOTHACHE
     Dosage: 2 DF, PRN
     Route: 048
     Dates: start: 20030101, end: 20030101
  2. NAPROXEN SODIUM [Suspect]
     Indication: HEADACHE
  3. MULTI-VITAMIN [Concomitant]
  4. XANAX [Concomitant]

REACTIONS (2)
  - HEADACHE [None]
  - TOOTHACHE [None]
